FAERS Safety Report 5702976-9 (Version None)
Quarter: 2008Q2

REPORT INFORMATION
  Report Type: 
  Country: None (occurrence: None)
  Receive Date: 20080411
  Receipt Date: 20080401
  Transmission Date: 20081010
  Serious: Yes (Other)
  Sender: FDA-Public Use
  Company Number: US-WYE-H03426908

PATIENT
  Sex: Male

DRUGS (2)
  1. ADVIL [Suspect]
     Indication: BACK PAIN
     Dosage: UNKNOWN DOSE EVERY FOUR TO SIX HOURS
     Route: 048
  2. ADVIL [Suspect]
     Indication: SCIATICA
     Dosage: A COUPLE OF ADVIL X 1
     Route: 048
     Dates: start: 20080101

REACTIONS (6)
  - BURNING SENSATION [None]
  - ERYTHEMA [None]
  - GLOSSODYNIA [None]
  - OEDEMA PERIPHERAL [None]
  - PRURITUS [None]
  - SWOLLEN TONGUE [None]
